FAERS Safety Report 8555189-X (Version None)
Quarter: 2012Q3

REPORT INFORMATION
  Report Type: 
  Country: None (occurrence: None)
  Receive Date: 20120731
  Receipt Date: 20120725
  Transmission Date: 20120928
  Serious: Yes (Hospitalization, Other)
  Sender: FDA-Public Use
  Company Number: US-AMGEN-KDL444460

PATIENT
  Age: 67 Year
  Sex: Female

DRUGS (1)
  1. ENBREL [Suspect]
     Indication: RHEUMATOID ARTHRITIS
     Dosage: UNK MG, UNK
     Route: 058
     Dates: start: 20040101

REACTIONS (7)
  - POST PROCEDURAL HAEMORRHAGE [None]
  - RHEUMATOID ARTHRITIS [None]
  - HYPOTENSION [None]
  - SQUAMOUS CELL CARCINOMA [None]
  - OESOPHAGEAL ULCER [None]
  - RHINOPLASTY [None]
  - BASAL CELL CARCINOMA [None]
